FAERS Safety Report 9300151 (Version 1)
Quarter: 2013Q1

REPORT INFORMATION
  Report Type: Spontaneous
  Country: US (occurrence: None)
  Receive Date: 20121231
  Receipt Date: 20121231
  Transmission Date: 20140127
  Serious: Yes (Hospitalization)
  Sender: FDA-Public Use
  Company Number: RB-44186-2012

PATIENT
  Sex: Female

DRUGS (9)
  1. SUBOXONE [Suspect]
     Indication: DRUG DEPENDENCE
     Route: 060
     Dates: start: 201009, end: 201206
  2. ZOLOFT [Concomitant]
  3. TRAZODONE [Concomitant]
  4. ZOFRAN [Concomitant]
  5. CARAFATE [Concomitant]
  6. PRILOSEC [Concomitant]
  7. NEXIUM [Concomitant]
  8. KLONOPIN [Concomitant]
  9. SIMVASTATIN [Concomitant]

REACTIONS (4)
  - Wrong technique in drug usage process [None]
  - Vomiting [None]
  - Drug withdrawal syndrome [None]
  - Abdominal pain [None]
